FAERS Safety Report 6764250-1 (Version None)
Quarter: 2010Q2

REPORT INFORMATION
  Report Type: 
  Country: None (occurrence: None)
  Receive Date: 20100608
  Receipt Date: 20100525
  Transmission Date: 20101027
  Serious: Yes (Hospitalization)
  Sender: FDA-Public Use
  Company Number: 011227

PATIENT
  Sex: Female

DRUGS (7)
  1. VIMPAT [Suspect]
     Indication: EPILEPSY
     Dosage: (150 MG BID ORAL), (150 MG, 50 MG + 100 MG ORAL), (FURTHER TAPERING ORAL)
     Route: 048
     Dates: start: 20100401, end: 20100411
  2. VIMPAT [Suspect]
     Indication: EPILEPSY
     Dosage: (150 MG BID ORAL), (150 MG, 50 MG + 100 MG ORAL), (FURTHER TAPERING ORAL)
     Route: 048
     Dates: start: 20100101
  3. VIVAL [Concomitant]
  4. TRILEPTAL [Concomitant]
  5. LEVOTHYROXINE SODIUM [Concomitant]
  6. LIPITOR [Concomitant]
  7. ZONEGRAN [Concomitant]

REACTIONS (9)
  - BLOOD CHOLESTEROL INCREASED [None]
  - BLOOD PRESSURE INCREASED [None]
  - CONVULSION [None]
  - DIPLOPIA [None]
  - DISCOMFORT [None]
  - DIZZINESS [None]
  - FATIGUE [None]
  - GAIT DISTURBANCE [None]
  - PAIN [None]
